FAERS Safety Report 19653158 (Version 1)
Quarter: 2021Q3

REPORT INFORMATION
  Report Type: Spontaneous
  Country: MX (occurrence: MX)
  Receive Date: 20210803
  Receipt Date: 20210803
  Transmission Date: 20211014
  Serious: Yes (Other)
  Sender: FDA-Public Use
  Company Number: MX-PFIZER INC-202100942220

PATIENT
  Age: 79 Year
  Sex: Female

DRUGS (2)
  1. IBRANCE [Suspect]
     Active Substance: PALBOCICLIB
     Indication: METASTATIC NEOPLASM
     Dosage: UNK, DAILY
  2. FULVESTRANT. [Concomitant]
     Active Substance: FULVESTRANT
     Indication: METASTATIC NEOPLASM

REACTIONS (3)
  - Neutropenia [Unknown]
  - Intentional product misuse [Unknown]
  - Thrombosis [Unknown]
